FAERS Safety Report 7460786-9 (Version None)
Quarter: 2011Q2

REPORT INFORMATION
  Report Type: 
  Country: None (occurrence: None)
  Receive Date: 20110505
  Receipt Date: 20110502
  Transmission Date: 20111010
  Serious: Yes (Hospitalization, Other)
  Sender: FDA-Public Use
  Company Number: US-PFIZER INC-2011064931

PATIENT
  Sex: Female
  Weight: 102 kg

DRUGS (3)
  1. PREDNISONE [Concomitant]
     Dosage: 60 MG, 1X/DAY
  2. EFFEXOR XR [Suspect]
     Indication: DEPRESSION
     Dosage: 300MG PER DAY
     Route: 048
     Dates: start: 19950101
  3. LEXAPRO [Concomitant]
     Indication: DEPRESSION
     Dosage: 10 MG, UNK
     Dates: start: 20090914

REACTIONS (3)
  - ATTENTION DEFICIT/HYPERACTIVITY DISORDER [None]
  - ORGANISING PNEUMONIA [None]
  - ALVEOLITIS ALLERGIC [None]
